FAERS Safety Report 6542434-5 (Version None)
Quarter: 2010Q1

REPORT INFORMATION
  Report Type: 
  Country: None (occurrence: None)
  Receive Date: 20100114
  Receipt Date: 20100114
  Transmission Date: 20100710
  Serious: Yes (Other)
  Sender: FDA-Public Use
  Company Number: None

PATIENT
  Sex: Male
  Weight: 37 kg

DRUGS (5)
  1. SERTRALINE HCL [Suspect]
     Indication: ASPERGER'S DISORDER
     Dosage: 200MG Q DAY
  2. SERTRALINE HCL [Suspect]
     Indication: OBSESSIVE-COMPULSIVE DISORDER
     Dosage: 200MG Q DAY
  3. GUANFACINE HYDROCHLORIDE [Concomitant]
  4. CLOMIPRAMINE [Concomitant]
  5. RISPERDAL [Concomitant]

REACTIONS (3)
  - DRUG EFFECT DECREASED [None]
  - PRODUCT SUBSTITUTION ISSUE [None]
  - THERAPEUTIC RESPONSE UNEXPECTED WITH DRUG SUBSTITUTION [None]
